FAERS Safety Report 8071456-0 (Version None)
Quarter: 2012Q1

REPORT INFORMATION
  Report Type: 
  Country: None (occurrence: None)
  Receive Date: 20120125
  Receipt Date: 20120112
  Transmission Date: 20120608
  Serious: Yes (Hospitalization, Disabling)
  Sender: FDA-Public Use
  Company Number: BR-MYLANLABS-2012S1001066

PATIENT
  Age: 60 Year
  Sex: Male

DRUGS (3)
  1. METHOTREXATE [Suspect]
     Indication: RHEUMATOID ARTHRITIS
     Dosage: 15 MG/WEEK
     Route: 065
  2. ADALIMUMAB [Suspect]
     Indication: RHEUMATOID ARTHRITIS
     Dosage: 40MG EVERY 15 DAYS
     Route: 058
     Dates: end: 20090401
  3. LEFLUNOMIDE [Suspect]
     Indication: RHEUMATOID ARTHRITIS
     Dosage: 20 MG/DAY
     Route: 065
     Dates: end: 20090401

REACTIONS (2)
  - BONE SARCOMA [None]
  - PARACOCCIDIOIDES INFECTION [None]
